APPROVED DRUG PRODUCT: NEOMYCIN SULFATE-DEXAMETHASONE SODIUM PHOSPHATE
Active Ingredient: DEXAMETHASONE SODIUM PHOSPHATE; NEOMYCIN SULFATE
Strength: EQ 0.1% PHOSPHATE;EQ 3.5MG BASE/ML
Dosage Form/Route: SOLUTION/DROPS;OPHTHALMIC
Application: A062714 | Product #001
Applicant: ALCON PHARMACEUTICALS LTD
Approved: Jul 21, 1986 | RLD: No | RS: No | Type: DISCN